FAERS Safety Report 6637044-5 (Version None)
Quarter: 2010Q1

REPORT INFORMATION
  Report Type: 
  Country: None (occurrence: None)
  Receive Date: 20100301
  Receipt Date: 20090227
  Transmission Date: 20100710
  Serious: Yes (Hospitalization)
  Sender: FDA-Public Use
  Company Number: RB-10806-2009

PATIENT
  Age: 19 Year
  Sex: Female

DRUGS (6)
  1. SUBOXONE [Suspect]
     Indication: DRUG USE FOR UNKNOWN INDICATION
     Dosage: 1 MG BID SUBLINGUAL
     Route: 060
  2. RESTORIL [Concomitant]
  3. LORAZEPAM [Concomitant]
  4. HALDOL [Concomitant]
  5. NICOPATH [Concomitant]
  6. LEXAPRO [Concomitant]

REACTIONS (1)
  - DEPRESSION [None]
